FAERS Safety Report 26099244 (Version 1)
Quarter: 2025Q4

REPORT INFORMATION
  Report Type: Spontaneous
  Country: US (occurrence: US)
  Receive Date: 20251128
  Receipt Date: 20251128
  Transmission Date: 20260118
  Serious: No
  Sender: EMD SERONO INC
  Company Number: US-Merck Healthcare KGaA-2025059916

PATIENT
  Age: 66 Year
  Sex: Female

DRUGS (2)
  1. MAVENCLAD [Suspect]
     Active Substance: CLADRIBINE
     Indication: Multiple sclerosis
     Dosage: FIRST YEAR FIRST MONTH THERAPY: 2 TABLETS ON DAYS 1 TO 4 AND 1 TABLET ON DAY 5
     Dates: start: 20250318, end: 20250322
  2. MAVENCLAD [Suspect]
     Active Substance: CLADRIBINE
     Dosage: FIRST YEAR SECOND MONTH THERAPY: 2 TABLETS ON DAYS 1 TO 3 AND 1 TABLET ON DAYS 4 TO 5
     Dates: start: 20250421, end: 20250425

REACTIONS (4)
  - Headache [Unknown]
  - Myalgia [Unknown]
  - Neck pain [Unknown]
  - Pain [Unknown]

NARRATIVE: CASE EVENT DATE: 20251101
